FAERS Safety Report 9860870 (Version 2)
Quarter: 2014Q1

REPORT INFORMATION
  Report Type: Spontaneous
  Country: US (occurrence: US)
  Receive Date: 20140202
  Receipt Date: 20140202
  Transmission Date: 20141002
  Serious: No
  Sender: FDA-Public Use
  Company Number: US-ALLERGAN-1302160US

PATIENT
  Age: 51 Year
  Sex: Male

DRUGS (4)
  1. BOTOX COSMETIC [Suspect]
     Indication: SKIN WRINKLING
     Dosage: UNK, SINGLE
     Route: 030
     Dates: start: 20130107, end: 20130107
  2. BOTOX COSMETIC [Suspect]
     Indication: SKIN WRINKLING
     Dosage: UNK, SINGLE
     Route: 030
     Dates: start: 20130107, end: 20130107
  3. BOTOX COSMETIC [Suspect]
     Dosage: 25 UNITS, SINGLE
     Route: 030
     Dates: start: 20120525, end: 20120525
  4. BOTOX COSMETIC [Suspect]
     Dosage: 24 UNITS, SINGLE
     Route: 030
     Dates: start: 20120525, end: 20120525

REACTIONS (4)
  - Off label use [Unknown]
  - Emotional distress [Unknown]
  - Diplopia [Recovered/Resolved]
  - Diplopia [Unknown]
